FAERS Safety Report 23455284 (Version 2)
Quarter: 2024Q1

REPORT INFORMATION
  Report Type: Report from Study
  Country: US (occurrence: US)
  Receive Date: 20240130
  Receipt Date: 20240227
  Transmission Date: 20240410
  Serious: Yes (Hospitalization, Other)
  Sender: FDA-Public Use
  Company Number: US-BoehringerIngelheim-2022-BI-208290

PATIENT
  Age: 73 Year
  Sex: Male

DRUGS (5)
  1. OFEV [Suspect]
     Active Substance: NINTEDANIB
     Indication: Idiopathic pulmonary fibrosis
     Route: 048
     Dates: start: 20221025
  2. ADVATE [Suspect]
     Active Substance: ANTIHEMOPHILIC FACTOR, HUMAN RECOMBINANT
     Indication: Factor VIII deficiency
     Dosage: INFUSE 2215 UNITS (1994-2436) SLOW IV PUSH THREE TIMES A WEEK ON MONDAY, WEDNESDAY, FRIDAY
     Dates: start: 202302
  3. TYLENOL [Concomitant]
     Active Substance: ACETAMINOPHEN
  4. TYLENOL [Concomitant]
     Active Substance: ACETAMINOPHEN
     Indication: Product used for unknown indication
  5. NORMAL SALINE FLUSH (10ML) [Concomitant]
     Indication: Product used for unknown indication

REACTIONS (7)
  - Dyspnoea [Unknown]
  - Vascular access site rupture [Unknown]
  - Coronary arterial stent insertion [Unknown]
  - Fall [Unknown]
  - Contusion [Unknown]
  - Diarrhoea [Unknown]
  - Weight increased [Unknown]

NARRATIVE: CASE EVENT DATE: 20240201
